FAERS Safety Report 8593684-8 (Version None)
Quarter: 2012Q3

REPORT INFORMATION
  Report Type: 
  Country: None (occurrence: None)
  Receive Date: 20120814
  Receipt Date: 20120810
  Transmission Date: 20120928
  Serious: Yes (Other)
  Sender: FDA-Public Use
  Company Number: CN-ABBOTT-12P-035-0967593-00

PATIENT
  Age: 8 Year
  Sex: Male

DRUGS (4)
  1. DEPAKENE [Suspect]
     Route: 048
     Dates: start: 20110601, end: 20120301
  2. DEPAKENE [Suspect]
     Indication: EPILEPSY
     Route: 048
     Dates: start: 20110601, end: 20120301
  3. DEPAKENE [Suspect]
     Dosage: 500 MG ER TAB DAILY
     Route: 048
     Dates: start: 20120301
  4. LEVETIRACETAM [Concomitant]
     Indication: PRODUCT USED FOR UNKNOWN INDICATION
     Dosage: 1 TAB DAILY
     Route: 048
     Dates: start: 20120301

REACTIONS (5)
  - FOAMING AT MOUTH [None]
  - LOSS OF CONSCIOUSNESS [None]
  - CONVULSION [None]
  - EPILEPSY [None]
  - TRISMUS [None]
